FAERS Safety Report 15381449 (Version 1)
Quarter: 2018Q3

REPORT INFORMATION
  Report Type: Spontaneous
  Country: GR (occurrence: GR)
  Receive Date: 20180913
  Receipt Date: 20180913
  Transmission Date: 20181010
  Serious: Yes (Death)
  Sender: FDA-Public Use
  Company Number: GR-EXELIXIS-CABO-18015871

PATIENT
  Age: 63 Year
  Sex: Male
  Weight: 85 kg

DRUGS (1)
  1. CABOMETYX [Suspect]
     Active Substance: CABOZANTINIB S-MALATE
     Indication: RENAL CELL CARCINOMA
     Dosage: 60 MG, QD
     Route: 048
     Dates: start: 20180322, end: 20180405

REACTIONS (2)
  - Encephalopathy [Fatal]
  - Acute hepatic failure [Fatal]

NARRATIVE: CASE EVENT DATE: 20180406
